FAERS Safety Report 6788331-1 (Version None)
Quarter: 2010Q2

REPORT INFORMATION
  Report Type: 
  Country: None (occurrence: None)
  Receive Date: 20100623
  Receipt Date: 20080618
  Transmission Date: 20101027
  Serious: Yes (Life-Threatening, Hospitalization, Disabling)
  Sender: FDA-Public Use
  Company Number: US-PFIZER INC-2008015486

PATIENT
  Sex: Female

DRUGS (1)
  1. FELDENE [Suspect]
     Dates: start: 20060201

REACTIONS (3)
  - ANXIETY [None]
  - DEPRESSION [None]
  - DERMATITIS EXFOLIATIVE GENERALISED [None]
